FAERS Safety Report 6384383-1 (Version None)
Quarter: 2009Q4

REPORT INFORMATION
  Report Type: 
  Country: None (occurrence: None)
  Receive Date: 20091001
  Receipt Date: 20090923
  Transmission Date: 20100525
  Serious: Yes (Hospitalization, Other)
  Sender: FDA-Public Use
  Company Number: US-JNJFOC-20090406598

PATIENT
  Sex: Female
  Weight: 91.17 kg

DRUGS (6)
  1. REMICADE [Suspect]
     Indication: RHEUMATOID ARTHRITIS
     Route: 042
  2. METHOTREXATE SODIUM [Concomitant]
  3. FOLIC ACID [Concomitant]
  4. CYMBALTA [Concomitant]
  5. TOPROL-XL [Concomitant]
  6. DICLOFENAC SODIUM [Concomitant]

REACTIONS (3)
  - BILE DUCT CANCER [None]
  - HEPATITIS C ANTIBODY POSITIVE [None]
  - PLEURAL FIBROSIS [None]
